FAERS Safety Report 10181438 (Version 1)
Quarter: 2014Q2

REPORT INFORMATION
  Report Type: Other
  Country: GB (occurrence: GB)
  Receive Date: 20140519
  Receipt Date: 20140519
  Transmission Date: 20141212
  Serious: Yes (Other)
  Sender: FDA-Public Use
  Company Number: GB-BRISTOL-MYERS SQUIBB COMPANY-20734364

PATIENT
  Sex: 0

DRUGS (1)
  1. EFAVIRENZ [Suspect]

REACTIONS (1)
  - Neurotoxicity [Unknown]
